FAERS Safety Report 8061622-2 (Version None)
Quarter: 2012Q1

REPORT INFORMATION
  Report Type: 
  Country: None (occurrence: None)
  Receive Date: 20120123
  Receipt Date: 20120118
  Transmission Date: 20120608
  Serious: Yes (Disabling)
  Sender: FDA-Public Use
  Company Number: GXKR2012DE000620

PATIENT

DRUGS (4)
  1. NEBIVOLOL HCL [Concomitant]
     Dosage: 1-0-0-0
  2. TORSEMIDE [Concomitant]
     Dosage: 1-0-0-0
  3. MIRTAZAPINE [Suspect]
     Indication: APATHY
     Dosage: 0-0-1
     Route: 048
     Dates: start: 20110723, end: 20110725
  4. PANTOPRAZOLE [Concomitant]
     Dosage: 1-0-1-0

REACTIONS (4)
  - THROMBOCYTOPENIA [None]
  - RENAL FAILURE ACUTE [None]
  - CUTANEOUS VASCULITIS [None]
  - DIARRHOEA [None]
